FAERS Safety Report 9038821 (Version 1)
Quarter: 2013Q1

REPORT INFORMATION
  Report Type: Spontaneous
  Country: US (occurrence: None)
  Receive Date: 20130123
  Receipt Date: 20130123
  Transmission Date: 20140127
  Serious: Yes (Disabling, Other)
  Sender: FDA-Public Use
  Company Number: None

PATIENT
  Age: 82 None
  Sex: Male
  Weight: 99.79 kg

DRUGS (1)
  1. CIPROFLOXACIN [Suspect]
     Indication: ABDOMINAL PAIN UPPER
     Route: 048
     Dates: start: 20121004, end: 20121012

REACTIONS (3)
  - Joint crepitation [None]
  - Hallucination [None]
  - Exercise tolerance decreased [None]
